FAERS Safety Report 20319676 (Version 3)
Quarter: 2022Q1

REPORT INFORMATION
  Report Type: Other
  Country: US (occurrence: None)
  Receive Date: 20220110
  Receipt Date: 20220128
  Transmission Date: 20220423
  Serious: Yes (Death)
  Sender: FDA-Public Use
  Company Number: US-ROCHE-2995991

PATIENT
  Sex: Male

DRUGS (11)
  1. XELODA [Suspect]
     Active Substance: CAPECITABINE
     Indication: Prostate cancer
     Dosage: TAKE 3 TABLET BY MOUTH TWICE A DAY FOR 2 WEEKS THEN 1 WEEK OFF
     Route: 048
  2. XELODA [Suspect]
     Active Substance: CAPECITABINE
     Indication: Breast cancer
  3. XELODA [Suspect]
     Active Substance: CAPECITABINE
     Indication: Metastases to bone
  4. XELODA [Suspect]
     Active Substance: CAPECITABINE
     Indication: Metastases to the respiratory system
  5. XELODA [Suspect]
     Active Substance: CAPECITABINE
     Indication: Metastases to gastrointestinal tract
  6. ATIVAN [Concomitant]
     Active Substance: LORAZEPAM
     Indication: Anxiety
  7. ATIVAN [Concomitant]
     Active Substance: LORAZEPAM
  8. NEXIUM [Concomitant]
     Active Substance: ESOMEPRAZOLE MAGNESIUM
  9. ULTRAM [Concomitant]
     Active Substance: TRAMADOL HYDROCHLORIDE
     Indication: Pain
  10. ULTRAM [Concomitant]
     Active Substance: TRAMADOL HYDROCHLORIDE
  11. XARELTO [Concomitant]
     Active Substance: RIVAROXABAN

REACTIONS (1)
  - Death [Fatal]
